FAERS Safety Report 18903638 (Version 1)
Quarter: 2021Q1

REPORT INFORMATION
  Report Type: Spontaneous
  Country: US (occurrence: US)
  Receive Date: 20210217
  Receipt Date: 20210217
  Transmission Date: 20210420
  Serious: Yes (Other)
  Sender: FDA-Public Use
  Company Number: US-GLAXOSMITHKLINE-US2021GSK044198

PATIENT
  Sex: Female

DRUGS (4)
  1. RANITIDINE. [Suspect]
     Active Substance: RANITIDINE
     Dosage: UNK, WE
     Route: 065
  2. ZANTAC [Suspect]
     Active Substance: RANITIDINE HYDROCHLORIDE
     Dosage: UNK UNK, WE
     Route: 065
     Dates: start: 200501, end: 201612
  3. RANITIDINE CAPSULE [Suspect]
     Active Substance: RANITIDINE
     Dosage: UNK UNK, WE
     Route: 065
     Dates: start: 200501, end: 201612
  4. RANITIDINE. [Suspect]
     Active Substance: RANITIDINE
     Dosage: UNK, WE
     Route: 065

REACTIONS (1)
  - Thyroid cancer [Unknown]
